FAERS Safety Report 24631966 (Version 5)
Quarter: 2025Q1

REPORT INFORMATION
  Report Type: Spontaneous
  Country: FR (occurrence: FR)
  Receive Date: 20241118
  Receipt Date: 20250124
  Transmission Date: 20250408
  Serious: Yes (Other)
  Sender: PFIZER
  Company Number: FR-PFIZER INC-PV202400148236

PATIENT
  Age: 60 Year
  Sex: Male
  Weight: 82 kg

DRUGS (7)
  1. VFEND [Interacting]
     Active Substance: VORICONAZOLE
     Indication: Aspergillus infection
     Dosage: 200 MG, 2X/DAY
     Route: 048
     Dates: start: 20240810
  2. VFEND [Interacting]
     Active Substance: VORICONAZOLE
     Dosage: 400 MG, DAILY AT NOON
     Route: 048
     Dates: start: 20240911
  3. VFEND [Interacting]
     Active Substance: VORICONAZOLE
     Dosage: 300 MG, 2X/DAY
     Route: 048
     Dates: start: 20240923, end: 20241025
  4. EFFEXOR [Interacting]
     Active Substance: VENLAFAXINE HYDROCHLORIDE
     Dates: start: 20210608
  5. LAMICTAL [Concomitant]
     Active Substance: LAMOTRIGINE
     Dosage: 150 MG, DAILY
  6. CARBIMAZOLE [Concomitant]
     Active Substance: CARBIMAZOLE
     Dosage: 5 MG, DAILY
  7. ASPIRIN [Concomitant]
     Active Substance: ASPIRIN
     Dosage: 100 MG, DAILY

REACTIONS (21)
  - Drug interaction [Unknown]
  - Serotonin syndrome [Unknown]
  - Suicidal ideation [Unknown]
  - Aggression [Recovering/Resolving]
  - Depression [Unknown]
  - Agitation [Recovering/Resolving]
  - Impulsive behaviour [Recovering/Resolving]
  - Weight fluctuation [Unknown]
  - Decreased appetite [Unknown]
  - Vertigo [Unknown]
  - Insomnia [Unknown]
  - Headache [Unknown]
  - Nausea [Unknown]
  - Fatigue [Unknown]
  - Hyperhidrosis [Unknown]
  - Confusional state [Unknown]
  - Disturbance in attention [Unknown]
  - Speech disorder [Unknown]
  - Diarrhoea [Unknown]
  - Depersonalisation/derealisation disorder [Unknown]
  - Weight decreased [Unknown]

NARRATIVE: CASE EVENT DATE: 20240101
